FAERS Safety Report 5864830-1 (Version None)
Quarter: 2008Q3

REPORT INFORMATION
  Report Type: 
  Country: None (occurrence: None)
  Receive Date: 20080829
  Receipt Date: 20080722
  Transmission Date: 20090109
  Serious: No
  Sender: FDA-Public Use
  Company Number: US-ABBOTT-08P-163-0465103-00

PATIENT
  Sex: Female
  Weight: 86.26 kg

DRUGS (6)
  1. SIMCOR [Suspect]
     Indication: BLOOD CHOLESTEROL INCREASED
     Dosage: 500/20 MILLIGRAMS DAILY AT BED TIME
     Route: 048
     Dates: start: 20080706
  2. HYDROCODONE BITARTRATE [Concomitant]
     Indication: NECK PAIN
     Route: 048
  3. GABAPENTIN [Concomitant]
     Indication: NECK PAIN
     Route: 048
     Dates: start: 20071101
  4. FEXOFENADINE [Concomitant]
     Indication: HYPERSENSITIVITY
     Route: 048
     Dates: start: 20040101
  5. CELECOXIB [Concomitant]
     Indication: DEPRESSION
     Route: 048
     Dates: start: 20040101
  6. IBUPROFEN SODIUM [Concomitant]
     Indication: PROPHYLAXIS
     Route: 048
     Dates: start: 20080706

REACTIONS (3)
  - ERYTHEMA [None]
  - FEELING HOT [None]
  - PARAESTHESIA [None]
